FAERS Safety Report 8984983 (Version 1)
Quarter: 2012Q4

REPORT INFORMATION
  Report Type: Report from Study
  Country: RU (occurrence: RU)
  Receive Date: 20121226
  Receipt Date: 20121226
  Transmission Date: 20130627
  Serious: Yes (Hospitalization)
  Sender: FDA-Public Use
  Company Number: RU-PFIZER INC-2008099026

PATIENT
  Age: 33 Year
  Sex: Male
  Weight: 91 kg

DRUGS (3)
  1. PREGABALIN [Suspect]
     Dosage: 75 mg/day
     Dates: start: 20080915, end: 20080915
  2. CARBAMAZEPINE [Concomitant]
     Route: 048
     Dates: start: 200607
  3. BENZOBARBITAL [Concomitant]
     Route: 048
     Dates: start: 1986

REACTIONS (1)
  - Burns third degree [Recovered/Resolved]
